FAERS Safety Report 4854337-2 (Version None)
Quarter: 2005Q4

REPORT INFORMATION
  Report Type: 
  Country: None (occurrence: None)
  Receive Date: 20051213
  Receipt Date: 20051205
  Transmission Date: 20060501
  Serious: Yes (Death)
  Sender: FDA-Public Use
  Company Number: A-CH2005-10974

PATIENT
  Age: 74 Year
  Sex: Female
  Weight: 76.3 kg

DRUGS (10)
  1. TRACLEER [Suspect]
     Indication: PULMONARY HYPERTENSION
     Dosage: 125 MG, BID, ORAL; 62.5 MG, BID, ORAL
     Route: 048
     Dates: start: 20041013, end: 20041110
  2. TRACLEER [Suspect]
     Indication: PULMONARY HYPERTENSION
     Dosage: 125 MG, BID, ORAL; 62.5 MG, BID, ORAL
     Route: 048
     Dates: start: 20041111, end: 20051020
  3. MARCUMAR [Concomitant]
  4. GLUCOPHAGE [Concomitant]
  5. BUMETANIDE [Concomitant]
  6. ALDACTONE [Concomitant]
  7. ALLOPURINOL [Concomitant]
  8. COMBIVENT (IPRATOPRIUM BROMIDE, SALBUTAMOL SULFATE) [Concomitant]
  9. CORDARONE [Concomitant]
  10. DIAMOX (ACETAZOLOMIDE) [Concomitant]

REACTIONS (2)
  - MYOCARDIAL INFARCTION [None]
  - RIGHT VENTRICULAR FAILURE [None]
